FAERS Safety Report 22609180 (Version 1)
Quarter: 2023Q2

REPORT INFORMATION
  Report Type: Spontaneous
  Country: US (occurrence: None)
  Receive Date: 20230615
  Receipt Date: 20230615
  Transmission Date: 20230721
  Serious: No
  Sender: FDA-Public Use
  Company Number: None

PATIENT
  Sex: Male

DRUGS (11)
  1. CAPECITABINE [Suspect]
     Active Substance: CAPECITABINE
     Indication: Oesophageal carcinoma
     Dosage: OTHER QUANTITY : 2T;?FREQUENCY : EVERY 12 HOURS;?
     Route: 048
  2. VITAMINS [Concomitant]
     Active Substance: VITAMINS
  3. FAMOTIDINE [Concomitant]
     Active Substance: FAMOTIDINE
  4. FLOMAX [Concomitant]
     Active Substance: TAMSULOSIN HYDROCHLORIDE
  5. ASPIRIN [Concomitant]
     Active Substance: ASPIRIN
  6. LEVOCETIRIZINE [Concomitant]
     Active Substance: LEVOCETIRIZINE
  7. VITAMIN D3 [Concomitant]
     Active Substance: CHOLECALCIFEROL
  8. METAMUCIL [Concomitant]
     Active Substance: PLANTAGO SEED
  9. METOPROLOL [Concomitant]
     Active Substance: METOPROLOL
  10. TIMOLOL [Concomitant]
     Active Substance: TIMOLOL
  11. ACETAMINOPHEN [Concomitant]
     Active Substance: ACETAMINOPHEN

REACTIONS (2)
  - Fall [None]
  - Hip fracture [None]
